FAERS Safety Report 11404233 (Version 1)
Quarter: 2015Q3

REPORT INFORMATION
  Report Type: Spontaneous
  Country: US (occurrence: US)
  Receive Date: 20150821
  Receipt Date: 20150821
  Transmission Date: 20151125
  Serious: No
  Sender: FDA-Public Use
  Company Number: US-GLAXOSMITHKLINE-US2015GSK107590

PATIENT
  Sex: Female
  Weight: 57.14 kg

DRUGS (7)
  1. VOTRIENT [Suspect]
     Active Substance: PAZOPANIB HYDROCHLORIDE
     Dosage: 200 MG, BID
  2. ONDANSETRON [Concomitant]
     Active Substance: ONDANSETRON
  3. VOTRIENT [Suspect]
     Active Substance: PAZOPANIB HYDROCHLORIDE
     Indication: SARCOMA UTERUS
     Dosage: 400 MG, QD
     Route: 048
     Dates: start: 20150417
  4. CALCIUM [Concomitant]
     Active Substance: CALCIUM
  5. ROPINIROLE. [Concomitant]
     Active Substance: ROPINIROLE
  6. COENZYME Q10 [Concomitant]
     Active Substance: UBIDECARENONE
  7. LISINOPRIL. [Concomitant]
     Active Substance: LISINOPRIL

REACTIONS (2)
  - Neuropathy peripheral [Not Recovered/Not Resolved]
  - Diarrhoea [Recovering/Resolving]
